FAERS Safety Report 7970904-1 (Version None)
Quarter: 2011Q4

REPORT INFORMATION
  Report Type: 
  Country: None (occurrence: None)
  Receive Date: 20111212
  Receipt Date: 20111208
  Transmission Date: 20120403
  Serious: Yes (Death, Other)
  Sender: FDA-Public Use
  Company Number: PHEH2008US08951

PATIENT
  Sex: Female

DRUGS (76)
  1. AMODEX [Concomitant]
  2. CARBOPLATIN [Concomitant]
  3. ADRIAMYCIN PFS [Concomitant]
  4. DEMEROL [Concomitant]
     Dosage: 50 MG
  5. EFEXOR                                  /USA/ [Concomitant]
     Dosage: UNK
  6. SALAGEN [Concomitant]
     Dosage: UNK
  7. ZYPREXA [Concomitant]
     Dosage: UNK
  8. DOCUSATE SODIUM [Concomitant]
     Dosage: UNK
  9. DOLOPHINE HCL [Concomitant]
  10. DIPHENHYDRAMINE HCL [Concomitant]
  11. LORTAB [Concomitant]
  12. NAPROXEN [Concomitant]
  13. NEURONTIN [Concomitant]
  14. COUMADIN [Concomitant]
  15. METHADONE HCL [Concomitant]
     Dosage: 20 MG / EVERY 3 HOURS
  16. RADIATION [Concomitant]
     Indication: METASTASES TO BONE
  17. SYNTHROID [Concomitant]
     Dosage: 10 MG
  18. MUCINEX DM [Concomitant]
     Dosage: UNK
  19. TEMAZEPAM [Concomitant]
     Dosage: UNK
  20. PROZAC [Concomitant]
     Dosage: UNK
  21. ATIVAN [Concomitant]
  22. ZOMETA [Suspect]
     Dosage: 4 MG, QMO
     Dates: start: 20010101, end: 20050210
  23. HERCEPTIN [Concomitant]
     Dosage: 140 MG, UNK
     Dates: end: 20050101
  24. FASLODEX [Concomitant]
  25. ARANESP [Concomitant]
  26. NEULASTA [Concomitant]
  27. PROCRIT                            /00909301/ [Concomitant]
     Dosage: 40,0000  / WEEKLY
     Route: 058
  28. CIPRO [Concomitant]
     Dosage: 500 MG, BID
     Route: 048
  29. IBUPROFEN (ADVIL) [Concomitant]
     Dosage: UNK
  30. AUGMENTAN ORAL [Concomitant]
     Dosage: UNK
  31. COMPAZINE [Concomitant]
     Dosage: UNK
  32. HALOPERIDOL LACTATE [Concomitant]
  33. AREDIA [Suspect]
     Indication: METASTASES TO BONE
     Dosage: 90 MG, UNK
     Dates: start: 19980101, end: 20010101
  34. GEMZAR [Concomitant]
  35. NAVELBINE [Concomitant]
  36. XELODA [Concomitant]
  37. DILAUDID [Concomitant]
     Dosage: 4 MG / AS NEEDED
  38. VIOXX [Concomitant]
     Dosage: UNK
  39. PROPOFOL [Concomitant]
  40. DARVOCET-N 50 [Concomitant]
  41. TORADOL [Concomitant]
  42. CHEMOTHERAPEUTICS NOS [Concomitant]
     Indication: METASTASES TO BONE
     Dosage: UNK
     Dates: start: 19980801
  43. PROTONIX [Concomitant]
  44. MEGACE [Concomitant]
  45. ACTIQ [Concomitant]
  46. POLYETHYLENE GLYCOL [Concomitant]
  47. MIDAZOLAM HYDROCHLORIDE [Concomitant]
  48. POTASSIUM CHLORIDE [Concomitant]
  49. ANZEMET [Concomitant]
  50. MORPHINE SULFATE [Concomitant]
  51. VICODIN [Concomitant]
  52. MORPHINE SULFATE [Concomitant]
  53. TAXOTERE [Concomitant]
     Dosage: 90 MG, UNK
  54. PERCOCET [Concomitant]
     Dosage: 10/325 / EVERY 4 HOURS
  55. INDOCIN - SLOW RELEASE [Concomitant]
     Dosage: UNK
  56. ZOFRAN [Concomitant]
     Dosage: UNK
  57. MOTRIN [Concomitant]
  58. FENTANYL CITRATE [Concomitant]
  59. DEXAMETHASONE [Concomitant]
  60. ALBUTEROL [Concomitant]
  61. ENULOSE [Concomitant]
  62. FEMARA [Concomitant]
  63. DURAGESIC-100 [Concomitant]
     Dosage: 50 MCG / EVERY 3 DAYS
  64. DECADRON [Concomitant]
     Dosage: UNK
  65. FLUZONE [Concomitant]
  66. TRASTUZUMAB [Concomitant]
  67. FAMOTIDINE [Concomitant]
  68. AMOXICILLIN [Concomitant]
  69. TORECAN [Concomitant]
  70. ZOMETA [Suspect]
     Dosage: UNK UKN, UNK
     Dates: start: 20070701, end: 20070801
  71. ARIMIDEX [Concomitant]
  72. CYTOXAN [Concomitant]
  73. PHENERGAN [Concomitant]
     Dosage: 25 MG
  74. MIRALAX [Concomitant]
     Dosage: UNK
  75. LYRICA [Concomitant]
  76. OMEPRAZOLE [Concomitant]

REACTIONS (79)
  - TOOTHACHE [None]
  - NAUSEA [None]
  - OSTEOARTHRITIS [None]
  - RED BLOOD CELLS URINE [None]
  - HYPERSOMNIA [None]
  - NEUROPATHY PERIPHERAL [None]
  - PRODUCTIVE COUGH [None]
  - HEART RATE IRREGULAR [None]
  - WEIGHT DECREASED [None]
  - RECTAL HAEMORRHAGE [None]
  - MASTICATION DISORDER [None]
  - DENTURE WEARER [None]
  - CERVICAL SPINAL STENOSIS [None]
  - INTERVERTEBRAL DISC PROTRUSION [None]
  - WHITE BLOOD CELL COUNT [None]
  - DEAFNESS [None]
  - NEOPLASM MALIGNANT [None]
  - HYPOTHYROIDISM [None]
  - AMNESIA [None]
  - DISABILITY [None]
  - PAIN [None]
  - BACK PAIN [None]
  - ANAEMIA OF MALIGNANT DISEASE [None]
  - PYREXIA [None]
  - BACTERIAL TEST NEGATIVE [None]
  - AXILLARY MASS [None]
  - BONE MARROW FAILURE [None]
  - FASCIITIS [None]
  - BRACHIAL PLEXOPATHY [None]
  - CHEST PAIN [None]
  - SYNCOPE [None]
  - ANHEDONIA [None]
  - METASTASES TO BONE [None]
  - DEPRESSION [None]
  - URINE ANALYSIS [None]
  - TOOTH ABSCESS [None]
  - BONE LESION [None]
  - NEURALGIA [None]
  - LIP DRY [None]
  - URINARY INCONTINENCE [None]
  - PANCOAST'S TUMOUR [None]
  - OSTEONECROSIS OF JAW [None]
  - ANXIETY [None]
  - SENSITIVITY OF TEETH [None]
  - PANCYTOPENIA [None]
  - VOMITING [None]
  - GASTRITIS [None]
  - ANAEMIA [None]
  - COMPRESSION FRACTURE [None]
  - SPINAL OSTEOARTHRITIS [None]
  - RESPIRATORY TRACT INFECTION [None]
  - ADRENAL ADENOMA [None]
  - STOMATITIS [None]
  - ATTENTION DEFICIT/HYPERACTIVITY DISORDER [None]
  - CIRCADIAN RHYTHM SLEEP DISORDER [None]
  - PLEURAL EFFUSION [None]
  - LEUKOPENIA [None]
  - BRONCHITIS [None]
  - DENTAL CARIES [None]
  - NECK PAIN [None]
  - MALNUTRITION [None]
  - MUSCULOSKELETAL PAIN [None]
  - GRANULOCYTOPENIA [None]
  - URINARY TRACT INFECTION [None]
  - BLOOD POTASSIUM DECREASED [None]
  - FATIGUE [None]
  - CHRONIC OBSTRUCTIVE PULMONARY DISEASE [None]
  - DEATH [None]
  - EMPHYSEMA [None]
  - BREAST CANCER METASTATIC [None]
  - DYSPNOEA [None]
  - MUSCULOSKELETAL STIFFNESS [None]
  - TREMOR [None]
  - BONE DISORDER [None]
  - INJURY [None]
  - IMPAIRED HEALING [None]
  - COLONIC STENOSIS [None]
  - ARTERIOSCLEROSIS [None]
  - RIB FRACTURE [None]
